FAERS Safety Report 5186229-6 (Version None)
Quarter: 2006Q4

REPORT INFORMATION
  Report Type: 
  Country: None (occurrence: None)
  Receive Date: 20061212
  Receipt Date: 20061129
  Transmission Date: 20070319
  Serious: Yes (Hospitalization)
  Sender: FDA-Public Use
  Company Number: US-2006-014620

PATIENT
  Age: 42 Year
  Sex: Female
  Weight: 49 kg

DRUGS (10)
  1. LEUKINE [Suspect]
     Indication: CROHN'S DISEASE
     Dosage: 1X/DAY, SUBCUTANEOUS
     Route: 058
     Dates: start: 20060426, end: 20060606
  2. LANSOPRAZOLE [Concomitant]
  3. ONDANSETRON HCL [Concomitant]
  4. FENTANYL [Concomitant]
  5. HYOSCYAMINE (HYOSCYAMINE) [Concomitant]
  6. IBANDRONATE SODIUM (IBANDRONATE SODIUM) [Concomitant]
  7. NORCO (HYDROCODONE BITARTRATE) [Concomitant]
  8. ESTRADIOL [Concomitant]
  9. PENTASA [Concomitant]
  10. RIFAXIMIN [Concomitant]

REACTIONS (28)
  - ADRENAL INSUFFICIENCY [None]
  - ALANINE AMINOTRANSFERASE DECREASED [None]
  - AV DISSOCIATION [None]
  - CHEST PAIN [None]
  - CULTURE WOUND POSITIVE [None]
  - DEPRESSION [None]
  - ELECTROCARDIOGRAM ABNORMAL [None]
  - ELECTROMECHANICAL DISSOCIATION [None]
  - ENTERITIS [None]
  - HEADACHE [None]
  - HYPERTENSION [None]
  - HYPOKALAEMIA [None]
  - HYPOTENSION [None]
  - INFECTION [None]
  - INTESTINAL FISTULA [None]
  - MITRAL VALVE INCOMPETENCE [None]
  - MUSCULOSKELETAL CHEST PAIN [None]
  - MYALGIA [None]
  - NEUTROPHIL PERCENTAGE DECREASED [None]
  - NODAL RHYTHM [None]
  - PERICARDIAL EFFUSION [None]
  - PERINEAL ABSCESS [None]
  - PULMONARY HYPERTENSION [None]
  - RENAL FAILURE [None]
  - SINUS BRADYCARDIA [None]
  - STREPTOCOCCAL INFECTION [None]
  - TRICUSPID VALVE INCOMPETENCE [None]
  - VULVAL ABSCESS [None]
